FAERS Safety Report 10678769 (Version 1)
Quarter: 2014Q4

REPORT INFORMATION
  Report Type: Spontaneous
  Country: AT (occurrence: AT)
  Receive Date: 20141229
  Receipt Date: 20141229
  Transmission Date: 20150529
  Serious: Yes (Death)
  Sender: FDA-Public Use
  Company Number: AT-JNJFOC-20141211901

PATIENT
  Age: 66 Year
  Sex: Male

DRUGS (8)
  1. MEROPENEM. [Concomitant]
     Active Substance: MEROPENEM
     Route: 065
     Dates: start: 20141119
  2. PIPERACILLIN AND TAZOBACTAM [Concomitant]
     Active Substance: PIPERACILLIN SODIUM\TAZOBACTAM SODIUM
     Route: 065
     Dates: start: 20141119
  3. STELARA [Suspect]
     Active Substance: USTEKINUMAB
     Indication: PSORIASIS
     Route: 058
     Dates: start: 201310, end: 201404
  4. STELARA [Suspect]
     Active Substance: USTEKINUMAB
     Indication: PSORIASIS
     Route: 058
     Dates: start: 20141013, end: 20141013
  5. VFEND [Concomitant]
     Active Substance: VORICONAZOLE
     Route: 065
     Dates: start: 20141119
  6. VANCOMYCIN [Concomitant]
     Active Substance: VANCOMYCIN
     Route: 065
     Dates: start: 20141119
  7. URBASON [Concomitant]
     Active Substance: METHYLPREDNISOLONE
  8. LEVOFLOXACIN. [Concomitant]
     Active Substance: LEVOFLOXACIN
     Route: 065
     Dates: start: 20141119

REACTIONS (3)
  - Cardiovascular disorder [Unknown]
  - Dermatitis exfoliative [Unknown]
  - Bacterial sepsis [Fatal]

NARRATIVE: CASE EVENT DATE: 201411
